FAERS Safety Report 5097041-0 (Version None)
Quarter: 2006Q3

REPORT INFORMATION
  Report Type: 
  Country: None (occurrence: None)
  Receive Date: 20060901
  Receipt Date: 20060821
  Transmission Date: 20061208
  Serious: Yes (Other)
  Sender: FDA-Public Use
  Company Number: 2006101717

PATIENT
  Age: 36 Year
  Sex: Male
  Weight: 85.5 kg

DRUGS (5)
  1. DOXYCYCLINE (DOXYCYCLINE) [Suspect]
     Indication: MALARIA PROPHYLAXIS
     Dosage: (100 MG,), ORAL
     Route: 048
     Dates: start: 20060603, end: 20060628
  2. BACILLUS TYPHOID (ALL OTHER THERAPEUTIC PRODUCTS) [Concomitant]
  3. DIPHTHERIA TYPHOID (ALL OTHER THERAPEUTIC PRODUCTS) [Concomitant]
  4. HEPATITIS A VIRUS ANTIGEN (HEPATITIS A VACCINE) [Concomitant]
  5. TETANUS TOXID (TETANUS TOXOID) [Concomitant]

REACTIONS (1)
  - DERMATITIS PSORIASIFORM [None]
